FAERS Safety Report 11170315 (Version 1)
Quarter: 2015Q2

REPORT INFORMATION
  Report Type: Spontaneous
  Country: FR (occurrence: None)
  Receive Date: 20150604
  Receipt Date: 20150604
  Transmission Date: 20150821
  Serious: Yes (Hospitalization)
  Sender: FDA-Public Use
  Company Number: B0965527A

PATIENT
  Age: 52 Year
  Sex: Female

DRUGS (7)
  1. BIPROFENID (KETOPROFEN) [Concomitant]
  2. AMOXICILLIN. [Concomitant]
     Active Substance: AMOXICILLIN
  3. SPASFON [Suspect]
     Active Substance: PHLOROGLUCINOL
     Indication: RENAL COLIC
     Dosage: U
     Route: 048
     Dates: start: 20140116, end: 20140118
  4. MORPHIN (MORPHINE) [Concomitant]
  5. KIVEXA [Suspect]
     Active Substance: ABACAVIR SULFATE\LAMIVUDINE
     Indication: HIV INFECTION
     Route: 048
     Dates: start: 20131129, end: 20140119
  6. PROFENID (KETOPROFEN) [Concomitant]
     Active Substance: KETOPROFEN
  7. EDURANT [Concomitant]
     Active Substance: RILPIVIRINE HYDROCHLORIDE

REACTIONS (3)
  - Eyelid oedema [None]
  - Urticaria [None]
  - Pruritus [None]

NARRATIVE: CASE EVENT DATE: 20140119
